FAERS Safety Report 14139609 (Version 4)
Quarter: 2017Q4

REPORT INFORMATION
  Report Type: Spontaneous
  Country: EG (occurrence: EG)
  Receive Date: 20171029
  Receipt Date: 20171117
  Transmission Date: 20180321
  Serious: Yes (Other)
  Sender: FDA-Public Use
  Company Number: PHHY2017EG157643

PATIENT
  Age: 65 Year
  Sex: Female

DRUGS (7)
  1. VIGAMOX [Suspect]
     Active Substance: MOXIFLOXACIN HYDROCHLORIDE
     Dosage: UNK UNK, Q2H
     Route: 047
     Dates: end: 20171012
  2. ARTIFICIAL TEARS [Suspect]
     Active Substance: GLYCERIN\HYPROMELLOSES\POLYETHYLENE GLYCOL 400
     Indication: PRODUCT USED FOR UNKNOWN INDICATION
     Dosage: UNK UNK, 5QD
     Route: 047
     Dates: start: 20171001
  3. TOBREX [Suspect]
     Active Substance: TOBRAMYCIN
     Indication: PRODUCT USED FOR UNKNOWN INDICATION
     Route: 047
  4. VIGAMOX [Suspect]
     Active Substance: MOXIFLOXACIN HYDROCHLORIDE
     Indication: CONJUNCTIVITIS
     Dosage: UNK, QID
     Route: 047
     Dates: start: 20171001
  5. TOBREX [Suspect]
     Active Substance: TOBRAMYCIN
     Indication: PRODUCT USED FOR UNKNOWN INDICATION
     Route: 047
  6. OFUSIDIC [Suspect]
     Active Substance: FUSIDIC ACID
     Indication: PRODUCT USED FOR UNKNOWN INDICATION
     Route: 047
  7. MOXICLAV [Suspect]
     Active Substance: AMOXICILLIN\CLAVULANATE POTASSIUM
     Indication: PRODUCT USED FOR UNKNOWN INDICATION
     Dosage: UNK UNK, BID
     Route: 065
     Dates: start: 20171001

REACTIONS (21)
  - Ulcerative keratitis [Unknown]
  - Eye infection [Recovering/Resolving]
  - Corneal infiltrates [Unknown]
  - Anterior chamber disorder [Unknown]
  - Corneal epithelium defect [Unknown]
  - Blindness [Not Recovered/Not Resolved]
  - Eye discharge [Unknown]
  - Corneal disorder [Recovering/Resolving]
  - Pallor [Unknown]
  - Eye pain [Unknown]
  - Conjunctival haemorrhage [Unknown]
  - Eyelid oedema [Unknown]
  - Erythema of eyelid [Unknown]
  - Suspected counterfeit product [Unknown]
  - Gangrene [Unknown]
  - Ischaemia [Unknown]
  - Foreign body in eye [Unknown]
  - Corneal neovascularisation [Unknown]
  - Corneal opacity [Unknown]
  - Foreign body sensation in eyes [Unknown]
  - Dry eye [Recovering/Resolving]

NARRATIVE: CASE EVENT DATE: 20171001
